FAERS Safety Report 11217576 (Version 1)
Quarter: 2015Q2

REPORT INFORMATION
  Report Type: Report from Study
  Country: KR (occurrence: KR)
  Receive Date: 20150625
  Receipt Date: 20150625
  Transmission Date: 20150821
  Serious: No
  Sender: FDA-Public Use
  Company Number: PHHY2015KR075130

PATIENT
  Age: 73 Year
  Sex: Male

DRUGS (9)
  1. EBASTEL [Concomitant]
     Active Substance: EBASTINE
     Indication: RASH
     Dosage: 10 MG,
     Route: 048
     Dates: start: 20131224
  2. FURIX [Concomitant]
     Active Substance: FUROSEMIDE
     Indication: HYPERTENSION
     Dosage: 80 MG,
     Route: 048
     Dates: start: 20131119, end: 20131130
  3. ZEMAGIS [Concomitant]
     Indication: RASH
     Dosage: 60 G,
     Route: 061
     Dates: start: 20131116, end: 20131125
  4. VIVIR [Concomitant]
     Indication: RASH
     Dosage: 5 G,
     Route: 061
     Dates: start: 20131115, end: 20131125
  5. AMN107 [Suspect]
     Active Substance: NILOTINIB
     Indication: CHRONIC MYELOID LEUKAEMIA
     Dosage: 800 MG, QD
     Route: 048
     Dates: start: 20131122
  6. BACTROBAN [Concomitant]
     Active Substance: MUPIROCIN\MUPIROCIN CALCIUM
     Indication: RASH
     Dosage: 10 G,
     Route: 061
     Dates: start: 20131116, end: 20131125
  7. PANTOLOC//PANTOPRAZOLE SODIUM SESQUIHYDRATE [Concomitant]
     Active Substance: PANTOPRAZOLE SODIUM
     Indication: PROPHYLAXIS
     Dosage: 20 MG,
     Route: 048
     Dates: start: 20131121, end: 20131130
  8. SPIRACTON [Concomitant]
     Indication: PLEURAL EFFUSION
     Dosage: 20 MG,
     Route: 048
     Dates: start: 20131109, end: 20131130
  9. URSA [Concomitant]
     Indication: PROPHYLAXIS
     Dosage: 300 MG,
     Route: 048
     Dates: start: 20131116, end: 20131130

REACTIONS (1)
  - Anaemia [Recovered/Resolved]

NARRATIVE: CASE EVENT DATE: 20131124
